FAERS Safety Report 9848358 (Version 2)
Quarter: 2014Q1

REPORT INFORMATION
  Report Type: Report from Study
  Country: US (occurrence: US)
  Receive Date: 20140128
  Receipt Date: 20140128
  Transmission Date: 20141002
  Serious: Yes (Hospitalization)
  Sender: FDA-Public Use
  Company Number: PHEH2014US000565

PATIENT
  Sex: Male

DRUGS (15)
  1. TASIGNA [Suspect]
     Indication: CHRONIC MYELOID LEUKAEMIA
     Dosage: 300 MG, BID
     Route: 048
     Dates: start: 20131216, end: 20131222
  2. METFORMIN HYDROCHLORIDE ER TABLETS [Suspect]
     Dosage: 1000 MG, BID
  3. MAGNESIUM OXIDE [Concomitant]
     Dosage: 400 MG, DAILY
     Route: 048
  4. FISH OIL [Concomitant]
  5. GLIMEPIRIDE [Concomitant]
  6. PLAVIX [Concomitant]
     Dosage: 1 DF, DAILY
  7. TRILIPIX [Concomitant]
     Dosage: 1 DF, DAILY
  8. NIASPAN [Concomitant]
  9. CRESTOR [Concomitant]
     Dosage: 1 DF, DAILY
  10. AVALIDE [Concomitant]
     Dosage: 1 DF, QD
  11. TOPROL XL [Concomitant]
     Dosage: 1 DF, QD
  12. ASPIRIN [Concomitant]
     Dosage: 1 DF, DAILY
  13. CHOLESTYRAMINE [Concomitant]
  14. NITROSTAT [Concomitant]
     Dosage: 1 DF, QHS
     Route: 060
  15. ONDANSETRON HCL [Concomitant]
     Dosage: 1 DF, Q12H

REACTIONS (7)
  - Chest pain [Recovered/Resolved]
  - Dyspnoea [Recovered/Resolved]
  - Nausea [Recovered/Resolved]
  - Stress [Unknown]
  - Discomfort [Unknown]
  - Diarrhoea [Not Recovered/Not Resolved]
  - Abdominal distension [Recovered/Resolved]
